FAERS Safety Report 7084343-1 (Version None)
Quarter: 2010Q4

REPORT INFORMATION
  Report Type: 
  Country: None (occurrence: None)
  Receive Date: 20101104
  Receipt Date: 20101029
  Transmission Date: 20110411
  Serious: Yes (Hospitalization)
  Sender: FDA-Public Use
  Company Number: FR-PFIZER INC-2010137874

PATIENT
  Age: 75 Year
  Sex: Male

DRUGS (9)
  1. TAHOR [Suspect]
     Dosage: 40 MG, 1X/DAY
     Route: 048
     Dates: start: 20100722, end: 20100911
  2. FUCIDINE [Interacting]
     Dosage: 500 MG, 3X/DAY
     Dates: start: 20100801
  3. FUCIDINE [Interacting]
     Dosage: 250 MG, 3X/DAY
     Route: 048
     Dates: end: 20100905
  4. RIFADIN [Concomitant]
     Dosage: 300 MG, 2X/DAY
     Dates: start: 20100719, end: 20100801
  5. RIFADIN [Concomitant]
     Dosage: UNK
     Route: 048
     Dates: start: 20100905, end: 20100911
  6. LEVOTHYROXINE SODIUM [Concomitant]
     Dosage: 75 UG, 1X/DAY
     Route: 048
  7. PERINDOPRIL [Concomitant]
     Route: 048
  8. SINTROM [Concomitant]
     Route: 048
  9. TENSTATEN [Concomitant]
     Dosage: 50 MG, 1X/DAY
     Route: 048

REACTIONS (14)
  - ATRIAL FIBRILLATION [None]
  - CONJUNCTIVAL HAEMORRHAGE [None]
  - DRUG INTERACTION [None]
  - GAIT DISTURBANCE [None]
  - INTERVERTEBRAL DISCITIS [None]
  - MONOPARESIS [None]
  - MUSCULAR WEAKNESS [None]
  - QUADRIPARESIS [None]
  - RADICULOPATHY [None]
  - RENAL FAILURE ACUTE [None]
  - RHABDOMYOLYSIS [None]
  - SIALOADENITIS [None]
  - SICCA SYNDROME [None]
  - WEIGHT DECREASED [None]
